FAERS Safety Report 8474050-2 (Version None)
Quarter: 2012Q2

REPORT INFORMATION
  Report Type: 
  Country: None (occurrence: None)
  Receive Date: 20120628
  Receipt Date: 20120606
  Transmission Date: 20120825
  Serious: Yes (Other)
  Sender: FDA-Public Use
  Company Number: US-MYLANLABS-2012S1009008

PATIENT
  Age: 44 Year
  Sex: Female

DRUGS (7)
  1. CYMBALTA [Concomitant]
  2. CLOZAPINE [Suspect]
     Route: 048
  3. M.V.I. [Concomitant]
  4. DEPAKOTE ER [Concomitant]
  5. IRON SULFATETHIAMIN COMPOUND TAB [Concomitant]
  6. CALCIUM + VIT D [Concomitant]
  7. CLOZAPINE [Suspect]
     Indication: SCHIZOAFFECTIVE DISORDER
     Route: 048
     Dates: end: 20120430

REACTIONS (1)
  - GRANULOCYTOPENIA [None]
